FAERS Safety Report 9369330 (Version 1)
Quarter: 2013Q2

REPORT INFORMATION
  Report Type: Spontaneous
  Country: US (occurrence: US)
  Receive Date: 20130626
  Receipt Date: 20130626
  Transmission Date: 20140414
  Serious: Yes (Hospitalization)
  Sender: FDA-Public Use
  Company Number: US-BAYER-2013-078134

PATIENT
  Sex: Female

DRUGS (4)
  1. GIANVI [Suspect]
     Dosage: UNK
     Dates: start: 201111, end: 20120529
  2. YASMIN [Suspect]
     Dosage: UNK
     Dates: start: 200904
  3. YAZ [Suspect]
     Dosage: UNK
     Dates: start: 2010, end: 201004
  4. YAZ [Suspect]
     Dosage: UNK
     Dates: start: 201109

REACTIONS (7)
  - Pulmonary embolism [None]
  - Injury [None]
  - Pain [None]
  - Emotional distress [None]
  - General physical health deterioration [None]
  - Anxiety [None]
  - Pain [None]
